FAERS Safety Report 8388659-8 (Version None)
Quarter: 2012Q2

REPORT INFORMATION
  Report Type: 
  Country: None (occurrence: None)
  Receive Date: 20120525
  Receipt Date: 20120515
  Transmission Date: 20120825
  Serious: Yes (Death, Hospitalization, Disabling, Other)
  Sender: FDA-Public Use
  Company Number: US-MERCK-1111USA02616

PATIENT
  Age: 69 Year
  Sex: Female
  Weight: 52 kg

DRUGS (3)
  1. FOSAMAX [Suspect]
     Indication: OSTEOPOROSIS
     Route: 048
     Dates: start: 20000825
  2. FOSAMAX [Suspect]
     Route: 048
     Dates: start: 20021115, end: 20090501
  3. FOSAMAX [Suspect]
     Route: 048

REACTIONS (41)
  - SKIN ULCER [None]
  - BRONCHITIS [None]
  - CAROTID ARTERY OCCLUSION [None]
  - FALL [None]
  - ANXIETY [None]
  - DUODENAL ULCER HAEMORRHAGE [None]
  - ANAEMIA [None]
  - FEMUR FRACTURE [None]
  - ASTHENIA [None]
  - TRANSIENT ISCHAEMIC ATTACK [None]
  - ARTERIOSCLEROSIS CORONARY ARTERY [None]
  - CEREBROVASCULAR ACCIDENT [None]
  - GASTROINTESTINAL ULCER HAEMORRHAGE [None]
  - DIARRHOEA [None]
  - ADVERSE DRUG REACTION [None]
  - INTRACRANIAL ANEURYSM [None]
  - VAGINITIS BACTERIAL [None]
  - PERIPHERAL VASCULAR DISORDER [None]
  - HYPONATRAEMIA [None]
  - DIVERTICULUM INTESTINAL [None]
  - VAGINAL HAEMORRHAGE [None]
  - RASH [None]
  - FRACTURE [None]
  - RIB FRACTURE [None]
  - INSOMNIA [None]
  - FAILURE TO THRIVE [None]
  - FEELING JITTERY [None]
  - DEPRESSION [None]
  - COLONIC POLYP [None]
  - ANEURYSM [None]
  - BRONCHITIS BACTERIAL [None]
  - CARDIAC FAILURE CONGESTIVE [None]
  - CHRONIC OBSTRUCTIVE PULMONARY DISEASE [None]
  - PNEUMONIA BACTERIAL [None]
  - CARPAL TUNNEL SYNDROME [None]
  - VISUAL IMPAIRMENT [None]
  - CONTUSION [None]
  - DRUG HYPERSENSITIVITY [None]
  - CAROTID ARTERY STENOSIS [None]
  - URINARY TRACT INFECTION [None]
  - NERVOUSNESS [None]
